FAERS Safety Report 8988255 (Version 1)
Quarter: 2012Q4

REPORT INFORMATION
  Report Type: 
  Country: FR (occurrence: FR)
  Receive Date: 20121227
  Receipt Date: 20121227
  Transmission Date: 20130627
  Serious: Yes (Hospitalization)
  Sender: FDA-Public Use
  Company Number: FR-ABBOTT-12P-056-1026519-00

PATIENT
  Age: 76 Year
  Sex: Female

DRUGS (11)
  1. DEPAKINE CHRONO [Suspect]
     Indication: EPILEPSY
     Route: 048
     Dates: end: 20121004
  2. PARKINANE [Suspect]
     Indication: PARKINSONISM
     Route: 048
     Dates: start: 201209, end: 201210
  3. MADOPAR [Suspect]
     Indication: PARKINSONISM
     Dosage: 125mg daily
     Dates: start: 201208
  4. MADOPAR [Suspect]
     Dates: start: 201210
  5. RIVOTRIL [Suspect]
     Indication: PRODUCT USED FOR UNKNOWN INDICATION
     Dosage: 15 drops daily
     Route: 048
     Dates: start: 2011, end: 20121004
  6. DUROGESIC [Concomitant]
     Indication: PRODUCT USED FOR UNKNOWN INDICATION
  7. SECTRAL [Concomitant]
     Indication: PRODUCT USED FOR UNKNOWN INDICATION
  8. STILNOX [Concomitant]
     Indication: PRODUCT USED FOR UNKNOWN INDICATION
  9. DOLIPRANE [Concomitant]
     Indication: PRODUCT USED FOR UNKNOWN INDICATION
  10. PREVISCAN [Concomitant]
     Indication: PRODUCT USED FOR UNKNOWN INDICATION
  11. CALCIFORTE [Concomitant]
     Indication: PRODUCT USED FOR UNKNOWN INDICATION

REACTIONS (3)
  - Movement disorder [Unknown]
  - Dysarthria [Unknown]
  - Confusional state [Unknown]
